FAERS Safety Report 15365860 (Version 2)
Quarter: 2018Q3

REPORT INFORMATION
  Report Type: Spontaneous
  Country: AT (occurrence: AT)
  Receive Date: 20180910
  Receipt Date: 20180910
  Transmission Date: 20181010
  Serious: Yes (Other)
  Sender: FDA-Public Use
  Company Number: PHHY2018AT075435

PATIENT
  Age: 61 Year
  Sex: Female

DRUGS (3)
  1. REVOLADE [Suspect]
     Active Substance: ELTROMBOPAG
     Indication: THROMBOCYTOPENIA
     Dosage: 100 MG, QD (3 DAYS LATER)
     Route: 065
  2. REVOLADE [Suspect]
     Active Substance: ELTROMBOPAG
     Indication: OVARIAN CANCER METASTATIC
     Dosage: 50 MG, QD
     Route: 065
     Dates: start: 20180801
  3. TAXOL [Suspect]
     Active Substance: PACLITAXEL
     Indication: THROMBOCYTOPENIA
     Route: 065

REACTIONS (6)
  - Thrombocytopenia [Unknown]
  - Product use in unapproved indication [Unknown]
  - Ovarian cancer metastatic [Unknown]
  - Malignant neoplasm progression [Unknown]
  - Liver function test increased [Recovering/Resolving]
  - Drug ineffective [Unknown]

NARRATIVE: CASE EVENT DATE: 20180801
